FAERS Safety Report 20456567 (Version 2)
Quarter: 2022Q1

REPORT INFORMATION
  Report Type: Spontaneous
  Country: US (occurrence: US)
  Receive Date: 20220210
  Receipt Date: 20220314
  Transmission Date: 20220423
  Serious: No
  Sender: FDA-Public Use
  Company Number: US-ELI_LILLY_AND_COMPANY-US202202003793

PATIENT
  Sex: Female

DRUGS (1)
  1. HUMULIN N [Suspect]
     Active Substance: INSULIN HUMAN
     Indication: Product used for unknown indication
     Dosage: 15 U, TID
     Route: 058

REACTIONS (4)
  - General physical health deterioration [Unknown]
  - Diabetic complication [Unknown]
  - Discomfort [Unknown]
  - Malaise [Unknown]
